FAERS Safety Report 9961243 (Version 6)
Quarter: 2014Q4

REPORT INFORMATION
  Report Type: Report from Study
  Country: US (occurrence: US)
  Receive Date: 20140305
  Receipt Date: 20141030
  Transmission Date: 20150529
  Serious: Yes (Other)
  Sender: FDA-Public Use
  Company Number: US-VERTEX PHARMACEUTICALS INC-2014-000977

PATIENT
  Age: 27 Year
  Sex: Female
  Weight: 55 kg

DRUGS (44)
  1. VITAMIN D [Concomitant]
     Active Substance: CHOLECALCIFEROL
     Indication: HYPOVITAMINOSIS
     Dosage: 5000 IU, QD
     Route: 048
     Dates: start: 2012
  2. VITAMIN D [Concomitant]
     Active Substance: CHOLECALCIFEROL
     Dosage: 50000 IU, QW
     Route: 048
     Dates: start: 2012
  3. IBUPROFEN. [Concomitant]
     Active Substance: IBUPROFEN
     Indication: HEADACHE
     Dosage: 800 MG, PRN
     Route: 048
     Dates: start: 2009
  4. BACTRIM [Concomitant]
     Active Substance: SULFAMETHOXAZOLE\TRIMETHOPRIM
     Indication: INFECTIVE PULMONARY EXACERBATION OF CYSTIC FIBROSIS
     Dosage: 1 DF, TID
     Route: 048
     Dates: start: 20131107, end: 20131127
  5. NYSTATIN. [Concomitant]
     Active Substance: NYSTATIN
     Indication: INFECTIVE PULMONARY EXACERBATION OF CYSTIC FIBROSIS
     Dosage: 400000 IU, QID
     Route: 048
     Dates: start: 20130802, end: 20130808
  6. VX-770 FDC [Suspect]
     Active Substance: IVACAFTOR
     Indication: CYSTIC FIBROSIS
     Dosage: 250 MG, Q12H
     Route: 048
     Dates: start: 20130906, end: 20140219
  7. DUONEB [Concomitant]
     Active Substance: ALBUTEROL SULFATE\IPRATROPIUM BROMIDE
     Indication: CYSTIC FIBROSIS LUNG
     Dosage: 1 DF, BID
     Route: 055
     Dates: start: 2008
  8. URSODIOL. [Concomitant]
     Active Substance: URSODIOL
     Indication: CYSTIC FIBROSIS HEPATIC DISEASE
     Dosage: 500 MG, QD
     Route: 048
     Dates: start: 2008
  9. LORTAB [Concomitant]
     Active Substance: ACETAMINOPHEN\HYDROCODONE BITARTRATE
     Indication: ARTHRALGIA
     Dosage: 15 ML, PRN (Q4-6HR)
     Route: 048
     Dates: start: 20140111, end: 20140121
  10. TOBI [Concomitant]
     Active Substance: TOBRAMYCIN
     Dosage: 300 MG, BID
     Route: 055
     Dates: start: 20131107, end: 20131205
  11. VITAMIN E [Concomitant]
     Active Substance: .ALPHA.-TOCOPHEROL
     Indication: HYPOVITAMINOSIS
     Dosage: 400 IU, QD
     Route: 048
     Dates: start: 20121218
  12. VX-809 FDC [Suspect]
     Active Substance: IVACAFTOR
     Dosage: 400 MG, Q12H
     Route: 048
     Dates: start: 20140304
  13. CIPRO [Concomitant]
     Active Substance: CIPROFLOXACIN HYDROCHLORIDE
     Indication: INFECTIVE PULMONARY EXACERBATION OF CYSTIC FIBROSIS
     Dosage: 1000 ML, SINGLE
     Route: 042
     Dates: start: 20130809, end: 20130809
  14. SALINE [Concomitant]
     Active Substance: SODIUM CHLORIDE
     Indication: SINUSITIS
     Dosage: 1 DF, QD
     Route: 045
     Dates: start: 2011
  15. VITAMIN D3 [Concomitant]
     Active Substance: CHOLECALCIFEROL
     Dosage: 50000 IU, QW
  16. TYLENOL [Concomitant]
     Active Substance: ACETAMINOPHEN
     Indication: HEADACHE
     Dosage: UNK
     Dates: start: 201401
  17. VX-809 FDC [Suspect]
     Active Substance: IVACAFTOR
     Indication: CYSTIC FIBROSIS
     Dosage: 400 MG, Q12H
     Route: 048
     Dates: start: 20140219, end: 20140220
  18. VITAMIN A [Concomitant]
     Active Substance: VITAMIN A
     Indication: HYPOVITAMINOSIS
     Dosage: 30000 IU, QD
     Route: 048
     Dates: start: 20121218
  19. CIPRO [Concomitant]
     Active Substance: CIPROFLOXACIN HYDROCHLORIDE
     Indication: SINUS OPERATION
     Dosage: 400 MG, TID
     Route: 042
     Dates: start: 20130726, end: 20130803
  20. MEROPENEM. [Concomitant]
     Active Substance: MEROPENEM
     Indication: INFECTIVE PULMONARY EXACERBATION OF CYSTIC FIBROSIS
     Dosage: 2 G, TID
     Route: 042
     Dates: start: 20130726, end: 20130803
  21. ZOFRAN [Concomitant]
     Active Substance: ONDANSETRON HYDROCHLORIDE
     Dosage: UNK
     Dates: start: 201401
  22. VX-770 FDC [Suspect]
     Active Substance: IVACAFTOR
     Dosage: 250 MG, Q12H
     Route: 048
     Dates: start: 20140304
  23. CEFTAZIDIME. [Concomitant]
     Active Substance: CEFTAZIDIME
     Indication: INFECTIVE PULMONARY EXACERBATION OF CYSTIC FIBROSIS
     Dosage: TID
     Route: 042
     Dates: start: 20131107, end: 20131127
  24. LEVAQUIN [Concomitant]
     Active Substance: LEVOFLOXACIN
     Indication: INFECTIVE PULMONARY EXACERBATION OF CYSTIC FIBROSIS
     Dosage: 500 MG, BID
     Route: 048
     Dates: start: 20130802, end: 20130808
  25. PREDNISONE. [Concomitant]
     Active Substance: PREDNISONE
     Indication: HERPES ZOSTER
     Dosage: 20 MG, QD
     Route: 048
     Dates: start: 20140111, end: 20140121
  26. TOBI [Concomitant]
     Active Substance: TOBRAMYCIN
     Indication: INFECTIVE PULMONARY EXACERBATION OF CYSTIC FIBROSIS
     Dosage: 300 MG, BID
     Route: 055
     Dates: start: 20130726, end: 20130803
  27. VX-770 FDC [Suspect]
     Active Substance: IVACAFTOR
     Indication: CYSTIC FIBROSIS
     Dosage: 250 MG, Q12H
     Route: 048
     Dates: start: 20140219, end: 20140220
  28. VX-809 FDC [Suspect]
     Active Substance: IVACAFTOR
     Indication: CYSTIC FIBROSIS
     Dosage: 400 MG, Q12H
     Route: 048
     Dates: start: 20130906, end: 20140219
  29. PULMOZYME [Concomitant]
     Active Substance: DORNASE ALFA
     Indication: CYSTIC FIBROSIS LUNG
     Dosage: 2.5 MG, QD
     Route: 055
     Dates: start: 2008
  30. VIMPAT [Concomitant]
     Active Substance: LACOSAMIDE
     Indication: SEIZURE
     Dosage: 50 MG, QD
     Route: 048
     Dates: start: 2011
  31. VITAL [Concomitant]
     Indication: PANCREATIC INSUFFICIENCY
     Dosage: 2 DF, QD
     Route: 051
     Dates: start: 2011
  32. VALTREX [Concomitant]
     Active Substance: VALACYCLOVIR HYDROCHLORIDE
     Indication: HERPES ZOSTER
     Dosage: 1000 MG, BID
     Route: 048
     Dates: start: 20140111, end: 20140121
  33. MOBIC [Concomitant]
     Active Substance: MELOXICAM
     Indication: ARTHRALGIA
     Dosage: 1 UNK, QD
     Route: 048
     Dates: start: 2012
  34. AQUADEKS [Concomitant]
     Indication: PANCREATIC INSUFFICIENCY
     Dosage: 2 DF, QD
     Route: 048
     Dates: start: 20080715
  35. MULTIVITAMIN [Concomitant]
     Active Substance: VITAMINS
     Indication: PANCREATIC INSUFFICIENCY
     Dosage: 1 DF, QD
     Route: 048
     Dates: start: 2008
  36. HYPERTONIC SALINE SOLUTION [Concomitant]
     Active Substance: SODIUM CHLORIDE
     Indication: CYSTIC FIBROSIS LUNG
     Dosage: 4 ML, BID
     Route: 055
     Dates: start: 20080715
  37. FENTANYL. [Concomitant]
     Active Substance: FENTANYL
     Indication: PAIN
     Dosage: 125 ?G, SINGLE
     Route: 042
     Dates: start: 2014
  38. LEVAQUIN [Concomitant]
     Active Substance: LEVOFLOXACIN
     Dosage: 750 MG, QD
     Route: 048
     Dates: start: 20140106, end: 20140120
  39. LORTAB [Concomitant]
     Active Substance: ACETAMINOPHEN\HYDROCODONE BITARTRATE
     Indication: HERPES ZOSTER
     Dosage: 15 ML, QD
     Route: 048
     Dates: start: 20130802, end: 20130812
  40. ALBUTEROL. [Concomitant]
     Active Substance: ALBUTEROL
     Indication: CYSTIC FIBROSIS LUNG
     Dosage: 2 DF, QID, PRN
     Route: 055
     Dates: start: 2008
  41. MARIJUANA [Concomitant]
     Active Substance: CANNABIS SATIVA SUBSP. INDICA TOP
     Dosage: 2X/WEEK, PRN
  42. MIDAZOLAM [Concomitant]
     Active Substance: MIDAZOLAM\MIDAZOLAM HYDROCHLORIDE
     Indication: PAIN
     Dosage: 5 MG, SINGLE
     Route: 042
     Dates: start: 2014
  43. CREON [Concomitant]
     Active Substance: PANCRELIPASE AMYLASE\PANCRELIPASE LIPASE\PANCRELIPASE PROTEASE
     Indication: PANCREATIC INSUFFICIENCY
     Dosage: 4 DF, W/MEALS
     Route: 048
     Dates: start: 20080715
  44. ATIVAN [Concomitant]
     Active Substance: LORAZEPAM
     Dosage: UNK
     Dates: start: 201401

REACTIONS (1)
  - Blood creatine phosphokinase increased [Recovered/Resolved]

NARRATIVE: CASE EVENT DATE: 20140219
